FAERS Safety Report 24030607 (Version 1)
Quarter: 2024Q2

REPORT INFORMATION
  Report Type: Spontaneous
  Country: AU (occurrence: AU)
  Receive Date: 20240628
  Receipt Date: 20240628
  Transmission Date: 20240716
  Serious: Yes (Death, Other)
  Sender: FDA-Public Use
  Company Number: AU-OTSUKA-2024_018224

PATIENT
  Age: 82 Year

DRUGS (1)
  1. INQOVI [Suspect]
     Active Substance: CEDAZURIDINE\DECITABINE
     Indication: Product used for unknown indication
     Dosage: (35 MG DECITABINE AND 100 MG CEDAZURIDINE)
     Route: 065
     Dates: start: 20231113

REACTIONS (1)
  - Death [Fatal]
